FAERS Safety Report 24744814 (Version 1)
Quarter: 2024Q4

REPORT INFORMATION
  Report Type: Report from Study
  Country: US (occurrence: US)
  Receive Date: 20241217
  Receipt Date: 20241217
  Transmission Date: 20250115
  Serious: Yes (Life-Threatening, Hospitalization, Other)
  Sender: ALEXION PHARMACEUTICALS
  Company Number: US-AstraZeneca-CH-00768001A

PATIENT

DRUGS (4)
  1. STRENSIQ [Suspect]
     Active Substance: ASFOTASE ALFA
     Indication: Hypophosphatasia
     Dosage: UNK
     Route: 065
  2. STRENSIQ [Suspect]
     Active Substance: ASFOTASE ALFA
     Dosage: UNK
     Route: 065
  3. STRENSIQ [Suspect]
     Active Substance: ASFOTASE ALFA
     Dosage: UNK
     Route: 065
  4. STRENSIQ [Suspect]
     Active Substance: ASFOTASE ALFA
     Dosage: UNK
     Route: 065

REACTIONS (13)
  - Encephalopathy [Unknown]
  - Syncope [Unknown]
  - Respiratory arrest [Unknown]
  - Autonomic nervous system imbalance [Unknown]
  - Hypertensive crisis [Unknown]
  - Terminal state [Unknown]
  - Injection site pain [Unknown]
  - Injection site erythema [Unknown]
  - Blood pressure fluctuation [Unknown]
  - Weight decreased [Unknown]
  - Mobility decreased [Unknown]
  - Dysstasia [Unknown]
  - Gait disturbance [Unknown]
